FAERS Safety Report 18089038 (Version 2)
Quarter: 2020Q3

REPORT INFORMATION
  Report Type: Report from Study
  Country: PT (occurrence: PT)
  Receive Date: 20200729
  Receipt Date: 20200908
  Transmission Date: 20201103
  Serious: Yes (Other)
  Sender: FDA-Public Use
  Company Number: PT-NEUROCRINE BIOSCIENCES INC.-2020NBI02663

PATIENT
  Age: 68 Year
  Sex: Female

DRUGS (2)
  1. ONGENTYS [Suspect]
     Active Substance: OPICAPONE
     Indication: ON AND OFF PHENOMENON
     Dosage: UNKNOWN
     Route: 065
  2. SINEMET [Suspect]
     Active Substance: CARBIDOPA\LEVODOPA
     Indication: ON AND OFF PHENOMENON
     Dosage: LEVODOPA DOSAGE: 475 (NO UNIT PROVIDED), UNKNOWN
     Route: 065

REACTIONS (11)
  - Bradykinesia [Unknown]
  - Balance disorder [Unknown]
  - Therapeutic response shortened [Unknown]
  - Delusion [Unknown]
  - Muscle rigidity [Unknown]
  - Hallucination [Unknown]
  - Sleep disorder [Unknown]
  - Tremor [Unknown]
  - Gait disturbance [Unknown]
  - Constipation [Unknown]
  - Dystonia [Unknown]
